FAERS Safety Report 23685516 (Version 1)
Quarter: 2024Q1

REPORT INFORMATION
  Report Type: Spontaneous
  Country: AR (occurrence: AR)
  Receive Date: 20240329
  Receipt Date: 20240329
  Transmission Date: 20240410
  Serious: Yes (Other)
  Sender: FDA-Public Use
  Company Number: AR-002147023-NVSC2022AR072985

PATIENT
  Sex: Female

DRUGS (5)
  1. AFINITOR [Suspect]
     Active Substance: EVEROLIMUS
     Indication: Breast cancer metastatic
     Dosage: 10 MG, QD
     Route: 048
     Dates: start: 20211206, end: 20220301
  2. FULVESTRANT [Suspect]
     Active Substance: FULVESTRANT
     Indication: Breast cancer metastatic
     Dosage: 1 (UNITS NOT PROVIDED), QMO
     Route: 065
     Dates: start: 20230227, end: 202311
  3. LETROZOLE [Suspect]
     Active Substance: LETROZOLE
     Indication: Breast cancer metastatic
     Dosage: UNK
     Route: 065
     Dates: end: 202311
  4. PIQRAY [Suspect]
     Active Substance: ALPELISIB
     Indication: Breast cancer metastatic
     Dosage: 250 MG, QD
     Route: 065
     Dates: start: 20230227, end: 202311
  5. TAMOXIFEN [Concomitant]
     Active Substance: TAMOXIFEN
     Indication: Product used for unknown indication
     Dosage: UNK
     Route: 065

REACTIONS (12)
  - Metastases to bone [Unknown]
  - Pneumonitis [Recovered/Resolved]
  - Malaise [Unknown]
  - Drug intolerance [Unknown]
  - Abdominal discomfort [Unknown]
  - Gastrointestinal inflammation [Unknown]
  - Blood glucose increased [Recovering/Resolving]
  - Stomatitis [Unknown]
  - Anaemia [Unknown]
  - Weight decreased [Recovering/Resolving]
  - Dyspnoea [Recovered/Resolved]
  - Oedema peripheral [Recovered/Resolved]
